FAERS Safety Report 14466327 (Version 4)
Quarter: 2018Q1

REPORT INFORMATION
  Report Type: Spontaneous
  Country: DE (occurrence: DE)
  Receive Date: 20180131
  Receipt Date: 20180323
  Transmission Date: 20180509
  Serious: Yes (Hospitalization, Other)
  Sender: FDA-Public Use
  Company Number: DE-ROCHE-2058851

PATIENT
  Age: 47 Year
  Sex: Male
  Weight: 79 kg

DRUGS (4)
  1. PANTOZOL [Concomitant]
     Active Substance: PANTOPRAZOLE SODIUM
     Indication: PROPHYLAXIS
     Route: 048
     Dates: start: 20180104, end: 20180116
  2. COTELLIC [Suspect]
     Active Substance: COBIMETINIB
     Indication: MALIGNANT MELANOMA STAGE IV
     Route: 048
     Dates: start: 20180104, end: 20180116
  3. ZELBORAF [Suspect]
     Active Substance: VEMURAFENIB
     Indication: MALIGNANT MELANOMA STAGE IV
     Route: 048
     Dates: start: 20180104, end: 20180116
  4. NOVALGIN (METAMIZOLE SODIUM) [Concomitant]
     Active Substance: METAMIZOLE SODIUM
     Indication: PAIN
     Route: 048

REACTIONS (3)
  - Stevens-Johnson syndrome [Recovering/Resolving]
  - Metastases to meninges [Not Recovered/Not Resolved]
  - Leukocytosis [Unknown]

NARRATIVE: CASE EVENT DATE: 20180116
